FAERS Safety Report 21047653 (Version 3)
Quarter: 2022Q3

REPORT INFORMATION
  Report Type: Spontaneous
  Country: AR (occurrence: AR)
  Receive Date: 20220706
  Receipt Date: 20220730
  Transmission Date: 20221026
  Serious: Yes (Hospitalization, Other)
  Sender: FDA-Public Use
  Company Number: AR-NOVARTISPH-NVSC2022AR153379

PATIENT
  Age: 81 Year
  Sex: Male

DRUGS (5)
  1. LESCOL XL [Suspect]
     Active Substance: FLUVASTATIN SODIUM
     Indication: Blood cholesterol increased
     Dosage: 1 DOSAGE FORM, QD (STARTED APPROXIMATELY 2 YEARS AGO OR A LITTLE MORE AND STOPPED 2 DAYS AGO)
     Route: 065
  2. ATENOLOL [Concomitant]
     Active Substance: ATENOLOL
     Indication: Product used for unknown indication
     Dosage: 0.25 DOSAGE FORM, QD
     Route: 065
  3. ASPIRIN [Concomitant]
     Active Substance: ASPIRIN
     Indication: Product used for unknown indication
     Dosage: 1 DOSAGE FORM, QD
     Route: 065
  4. PARKINAL [Concomitant]
     Indication: Parkinson^s disease
     Dosage: 3 DOSAGE FORM, QD (3 X 100/25 UNITS WAS NOT PROVIDED)
     Route: 065
  5. OMEPRAZOLE [Concomitant]
     Active Substance: OMEPRAZOLE
     Indication: Gastric disorder
     Dosage: 1 DOSAGE FORM, QD
     Route: 065

REACTIONS (4)
  - Thrombosis [Recovered/Resolved]
  - Musculoskeletal stiffness [Unknown]
  - Nervousness [Unknown]
  - Product availability issue [Unknown]

NARRATIVE: CASE EVENT DATE: 20211019
